FAERS Safety Report 7928862-1 (Version None)
Quarter: 2011Q4

REPORT INFORMATION
  Report Type: 
  Country: None (occurrence: None)
  Receive Date: 20111118
  Receipt Date: 20111115
  Transmission Date: 20120403
  Serious: Yes (Death)
  Sender: FDA-Public Use
  Company Number: US-CELGENEUS-163-21880-11103198

PATIENT
  Sex: Female
  Weight: 62.198 kg

DRUGS (14)
  1. QUESTRAN [Concomitant]
     Route: 065
  2. REVLIMID [Suspect]
     Indication: MULTIPLE MYELOMA
     Dosage: 5 MILLIGRAM
     Route: 048
     Dates: start: 20110531, end: 20111014
  3. ASPIRIN [Concomitant]
     Route: 065
  4. POTASSIUM CHLORIDE [Concomitant]
     Route: 065
  5. HEPARIN [Concomitant]
     Route: 065
  6. METAMUCIL-2 [Concomitant]
     Route: 065
  7. BISMUTH SUBSALICYLATE [Concomitant]
     Route: 065
  8. APRODINE [Concomitant]
     Route: 065
  9. MULTI-VITAMINS [Concomitant]
     Route: 065
  10. TOPROL-XL [Concomitant]
     Route: 065
  11. XANAX [Concomitant]
     Route: 065
  12. CALCIUM CARBONATE [Concomitant]
     Route: 065
  13. FLORASTOR [Concomitant]
     Route: 065
  14. PROCRIT [Concomitant]
     Route: 065

REACTIONS (1)
  - DEATH [None]
